FAERS Safety Report 5811619-5 (Version None)
Quarter: 2008Q3

REPORT INFORMATION
  Report Type: 
  Country: None (occurrence: None)
  Receive Date: 20080714
  Receipt Date: 20080626
  Transmission Date: 20090109
  Serious: Yes (Congenital Anomaly)
  Sender: FDA-Public Use
  Company Number: 100#08#2008-03392

PATIENT
  Age: 9 Year
  Sex: Female

DRUGS (3)
  1. PHENYTOIN [Suspect]
     Indication: DRUG EXPOSURE DURING PREGNANCY
     Dosage: TRANSPLACENTAL
     Route: 064
  2. PHENOBARBITAL TAB [Suspect]
     Indication: DRUG EXPOSURE DURING PREGNANCY
     Dosage: TRANSPLACENTAL
     Route: 064
  3. CARBAMAZEPINE [Suspect]
     Indication: DRUG EXPOSURE DURING PREGNANCY
     Dosage: TRANSPLACENTAL
     Route: 064

REACTIONS (15)
  - CHROMOSOMAL DELETION [None]
  - DRUG EXPOSURE DURING PREGNANCY [None]
  - DRUG WITHDRAWAL SYNDROME NEONATAL [None]
  - DYSMORPHISM [None]
  - FOETAL ANTICONVULSANT SYNDROME [None]
  - GASTROOESOPHAGEAL REFLUX DISEASE [None]
  - LONG QT SYNDROME [None]
  - MENTAL RETARDATION [None]
  - NEONATAL DISORDER [None]
  - PSYCHOMOTOR SKILLS IMPAIRED [None]
  - PULMONARY VALVE STENOSIS CONGENITAL [None]
  - RENAL HYPOPLASIA [None]
  - SINUS TACHYCARDIA [None]
  - URINARY TRACT INFECTION [None]
  - VESICOURETERIC REFLUX [None]
